FAERS Safety Report 11241213 (Version 2)
Quarter: 2015Q3

REPORT INFORMATION
  Report Type: Spontaneous
  Country: NZ (occurrence: NZ)
  Receive Date: 20150706
  Receipt Date: 20150804
  Transmission Date: 20151125
  Serious: Yes (Other)
  Sender: FDA-Public Use
  Company Number: NZ-GE HEALTHCARE MEDICAL DIAGNOSTICS-VISP-PR-1506S-0244

PATIENT
  Age: 64 Year
  Sex: Male
  Weight: 100 kg

DRUGS (7)
  1. VISIPAQUE [Suspect]
     Active Substance: IODIXANOL
     Indication: PRODUCT USED FOR UNKNOWN INDICATION
     Route: 013
     Dates: start: 20150624, end: 20150624
  2. ATORVASTATIN [Concomitant]
     Active Substance: ATORVASTATIN
  3. CANDESARTAN [Concomitant]
     Active Substance: CANDESARTAN
  4. VISIPAQUE [Suspect]
     Active Substance: IODIXANOL
     Indication: THERAPEUTIC PROCEDURE
  5. ASPIRIN. [Concomitant]
     Active Substance: ASPIRIN
  6. BISOPROLOL [Concomitant]
     Active Substance: BISOPROLOL
  7. VISIPAQUE [Suspect]
     Active Substance: IODIXANOL
     Indication: DIAGNOSTIC PROCEDURE

REACTIONS (4)
  - Periorbital oedema [Recovering/Resolving]
  - Obstructive airways disorder [Unknown]
  - Swelling [Recovering/Resolving]
  - Rash pruritic [Recovering/Resolving]

NARRATIVE: CASE EVENT DATE: 20150624
